FAERS Safety Report 24559085 (Version 1)
Quarter: 2024Q4

REPORT INFORMATION
  Report Type: Spontaneous
  Country: US (occurrence: US)
  Receive Date: 20241029
  Receipt Date: 20241029
  Transmission Date: 20250114
  Serious: Yes (Hospitalization, Other)
  Sender: DR REDDYS
  Company Number: US-DRL-USA-LIT/USA/24/0015835

PATIENT
  Age: 65 Year
  Sex: Male

DRUGS (3)
  1. THIOTEPA [Suspect]
     Active Substance: THIOTEPA
     Indication: Follicular lymphoma
  2. RITUXIMAB [Suspect]
     Active Substance: RITUXIMAB
     Indication: Follicular lymphoma
  3. CYTARABINE [Suspect]
     Active Substance: CYTARABINE
     Indication: Follicular lymphoma

REACTIONS (4)
  - Clostridium bacteraemia [Recovered/Resolved]
  - Febrile neutropenia [Recovered/Resolved]
  - Pneumonia aspiration [Recovered/Resolved]
  - Product use in unapproved indication [Unknown]
